FAERS Safety Report 9172427 (Version 1)
Quarter: 2012Q4

REPORT INFORMATION
  Report Type: 
  Country: US (occurrence: US)
  Receive Date: 20120911
  Receipt Date: 20120911
  Transmission Date: 20130627
  Serious: Yes (Other)
  Sender: FDA-Public Use
  Company Number: PHHY2012US078283

PATIENT
  Age: 61 Year
  Sex: Female

DRUGS (1)
  1. HYDROCHLOROTHIAZIDE [Suspect]
     Indication: HYPERTENSION

REACTIONS (7)
  - Mycosis fungoides stage I [Recovered/Resolved]
  - Rash pruritic [Recovered/Resolved]
  - Dermatitis [Recovered/Resolved]
  - Parakeratosis [Recovered/Resolved]
  - Lymphocytic infiltration [Recovered/Resolved]
  - Skin lesion [Recovered/Resolved]
  - Skin fibrosis [Recovered/Resolved]
